FAERS Safety Report 4514337-9 (Version None)
Quarter: 2004Q4

REPORT INFORMATION
  Report Type: 
  Country: None (occurrence: None)
  Receive Date: 20041124
  Receipt Date: 20041110
  Transmission Date: 20050328
  Serious: Yes (Hospitalization)
  Sender: FDA-Public Use
  Company Number: DE_041114678

PATIENT
  Age: 71 Year
  Sex: Male

DRUGS (1)
  1. GEMZAR [Suspect]
     Indication: BRONCHIAL CARCINOMA
     Dates: start: 20041020, end: 20041103

REACTIONS (3)
  - LYMPHOEDEMA [None]
  - PLATELET COUNT DECREASED [None]
  - VEIN DISORDER [None]
